FAERS Safety Report 7210903-0 (Version None)
Quarter: 2011Q1

REPORT INFORMATION
  Report Type: 
  Country: None (occurrence: None)
  Receive Date: 20110105
  Receipt Date: 20101228
  Transmission Date: 20110831
  Serious: Yes (Other)
  Sender: FDA-Public Use
  Company Number: US-ELI_LILLY_AND_COMPANY-US201002002958

PATIENT
  Sex: Female

DRUGS (1)
  1. FORTEO [Suspect]
     Indication: OSTEOPOROSIS
     Dosage: 20 UG, DAILY (1/D)
     Dates: start: 20090908

REACTIONS (6)
  - MIDDLE INSOMNIA [None]
  - RETINAL DETACHMENT [None]
  - INJURY [None]
  - BLINDNESS UNILATERAL [None]
  - JAW DISORDER [None]
  - MUSCLE SPASMS [None]
